FAERS Safety Report 10133493 (Version 1)
Quarter: 2014Q2

REPORT INFORMATION
  Report Type: Spontaneous
  Country: US (occurrence: US)
  Receive Date: 20140428
  Receipt Date: 20140428
  Transmission Date: 20141212
  Serious: No
  Sender: FDA-Public Use
  Company Number: US-PFIZER INC-2014112409

PATIENT
  Age: 61 Year
  Sex: Female
  Weight: 73.02 kg

DRUGS (14)
  1. REVATIO [Suspect]
     Indication: PULMONARY ARTERIAL HYPERTENSION
     Dosage: 20 MG, 3X/DAY
     Route: 048
  2. TESSALON [Suspect]
     Dosage: 100 MG, UNK
     Route: 048
  3. XANAX [Suspect]
     Dosage: 2 MG/DAY (2 TABLETS AT BED TIME) BED TIME)
     Route: 048
  4. ZOLOFT [Suspect]
     Dosage: 100 MG, UNK
     Route: 048
  5. ALBUTEROL SULFATE [Concomitant]
     Dosage: (1 UNIT DOSE IN NEBULIZER EVERY 4 TO 6 HOURS) AS NEEDED
  6. BIOTIN [Concomitant]
     Dosage: 2500 UG, UNK
     Route: 048
  7. CARVEDILOL [Concomitant]
     Dosage: 25 MG, UNK
     Route: 048
  8. HYDRALAZINE HCL [Concomitant]
     Dosage: 100 MG, UNK
     Route: 048
  9. LISINOPRIL [Concomitant]
     Dosage: 10 MG, UNK
     Route: 048
  10. ALBUTEROL SULFATE/IPRATROPIUM BROMIDE [Concomitant]
     Dosage: 2.5 - 0.5 (3)MG/ 3ML
  11. NIFEDIPINE [Concomitant]
     Dosage: 90 MG, 1X/DAY
     Route: 048
  12. PRILOSEC [Concomitant]
     Dosage: 40 MG, DAILY
     Route: 048
  13. ROBINUL [Concomitant]
     Dosage: 1 MG, UNK
     Route: 048
  14. TRICOR [Concomitant]
     Dosage: 48 MG, DAILY
     Route: 048

REACTIONS (1)
  - Peripheral swelling [Unknown]
